FAERS Safety Report 9870542 (Version 2)
Quarter: 2014Q1

REPORT INFORMATION
  Report Type: Spontaneous
  Country: JP (occurrence: JP)
  Receive Date: 20140205
  Receipt Date: 20140210
  Transmission Date: 20141002
  Serious: Yes (Hospitalization, Other)
  Sender: FDA-Public Use
  Company Number: JP-009507513-1402JPN000164

PATIENT
  Age: 39 Year
  Sex: Male

DRUGS (12)
  1. GLACTIV [Suspect]
     Indication: TYPE 2 DIABETES MELLITUS
     Dosage: 50 MG, UNK
     Route: 048
  2. METFORMIN HYDROCHLORIDE [Suspect]
     Dosage: 500 MG, 50 TABLETS
     Route: 048
  3. BISOPROLOL [Concomitant]
  4. CANDESARTAN CILEXETIL [Concomitant]
  5. ALDACTONE A [Concomitant]
  6. ALLOPURINOL [Concomitant]
  7. LANSOPRAZOLE [Concomitant]
  8. ALPRAZOLAM [Concomitant]
  9. LAMOTRIGINE [Concomitant]
  10. PAROXETINE [Concomitant]
  11. PIOGLITAZONE HYDROCHLORIDE [Concomitant]
  12. LOXOPROFEN [Concomitant]

REACTIONS (2)
  - Suicide attempt [Unknown]
  - Lactic acidosis [Unknown]
